FAERS Safety Report 7964475-3 (Version None)
Quarter: 2011Q4

REPORT INFORMATION
  Report Type: 
  Country: None (occurrence: None)
  Receive Date: 20111208
  Receipt Date: 20111129
  Transmission Date: 20120403
  Serious: Yes (Death)
  Sender: FDA-Public Use
  Company Number: US-BAYER-2011-115996

PATIENT
  Age: 38 Year
  Sex: Female
  Weight: 132.88 kg

DRUGS (7)
  1. ALBUTEROL [Concomitant]
     Indication: ASTHMA
     Dosage: UNK
     Dates: start: 20070716
  2. AMOXICILLIN AND CLAVULANATE POTASSIUM [Concomitant]
     Dosage: 875 MG, BID
     Route: 048
     Dates: start: 20070716
  3. HYDROCODONE/GG SYRUP [Concomitant]
     Indication: COUGH
     Dosage: UNK UNK, Q4HR
     Route: 048
     Dates: start: 20070717
  4. YASMIN [Suspect]
     Indication: MENORRHAGIA
  5. ADVAIR DISKUS 100/50 [Concomitant]
     Indication: ASTHMA
     Dosage: UNK
     Dates: start: 20070716
  6. AMOXICILLIN [Concomitant]
     Indication: ASTHMA
     Dosage: UNK
     Dates: start: 20070716
  7. YASMIN [Suspect]
     Indication: CONTRACEPTION
     Dosage: UNK UNK, QD
     Route: 048
     Dates: start: 20021029, end: 20070717

REACTIONS (2)
  - PULMONARY EMBOLISM [None]
  - DEEP VEIN THROMBOSIS [None]
